FAERS Safety Report 6495818-8 (Version None)
Quarter: 2009Q4

REPORT INFORMATION
  Report Type: 
  Country: None (occurrence: None)
  Receive Date: 20091214
  Receipt Date: 20090817
  Transmission Date: 20100525
  Serious: No
  Sender: FDA-Public Use
  Company Number: US-BRISTOL-MYERS SQUIBB COMPANY-14743744

PATIENT
  Age: 7 Year
  Sex: Female
  Weight: 38 kg

DRUGS (4)
  1. ABILIFY [Suspect]
     Indication: OPPOSITIONAL DEFIANT DISORDER
     Dosage: TAKEN FOR FOR 1.5MNTHS
  2. ABILIFY [Suspect]
     Indication: BIPOLAR DISORDER
     Dosage: TAKEN FOR FOR 1.5MNTHS
  3. SINGULAIR [Concomitant]
  4. ALBUTEROL [Concomitant]

REACTIONS (1)
  - WEIGHT INCREASED [None]
